FAERS Safety Report 6113085-1 (Version None)
Quarter: 2009Q1

REPORT INFORMATION
  Report Type: 
  Country: None (occurrence: None)
  Receive Date: 20090312
  Receipt Date: 20090309
  Transmission Date: 20090719
  Serious: Yes (Life-Threatening)
  Sender: FDA-Public Use
  Company Number: JP-ASTRAZENECA-2009AP01762

PATIENT
  Age: 59 Year
  Sex: Female

DRUGS (1)
  1. OMEPRAL [Suspect]
     Indication: DUODENAL ULCER
     Dosage: DOSE UNKNOWN
     Route: 048

REACTIONS (1)
  - THROMBOTIC THROMBOCYTOPENIC PURPURA [None]
